FAERS Safety Report 5619257-4 (Version None)
Quarter: 2008Q1

REPORT INFORMATION
  Report Type: 
  Country: None (occurrence: None)
  Receive Date: 20080205
  Receipt Date: 20080128
  Transmission Date: 20080703
  Serious: Yes (Hospitalization)
  Sender: FDA-Public Use
  Company Number: E2020-01989-SPO-JP

PATIENT
  Age: 83 Year
  Sex: Male

DRUGS (5)
  1. ARICEPT [Suspect]
     Indication: DEMENTIA ALZHEIMER'S TYPE
     Dosage: 5 MG, 1 IN 1 D, ORAL
     Route: 048
     Dates: start: 20071119, end: 20071207
  2. PROBUCOL [Concomitant]
  3. CAMLEED (ENPROSTIL) [Concomitant]
  4. CEROCRAL (IFENPRODIL TARTRATE) [Concomitant]
  5. ASPIRIN [Concomitant]

REACTIONS (8)
  - ALANINE AMINOTRANSFERASE INCREASED [None]
  - ASPARTATE AMINOTRANSFERASE INCREASED [None]
  - BLOOD ALKALINE PHOSPHATASE INCREASED [None]
  - GAMMA-GLUTAMYLTRANSFERASE INCREASED [None]
  - HEPATIC FUNCTION ABNORMAL [None]
  - HYPERSENSITIVITY [None]
  - MALAISE [None]
  - PANCYTOPENIA [None]
